FAERS Safety Report 5668997-X (Version None)
Quarter: 2008Q1

REPORT INFORMATION
  Report Type: 
  Country: None (occurrence: None)
  Receive Date: 20080317
  Receipt Date: 20080221
  Transmission Date: 20080703
  Serious: No
  Sender: FDA-Public Use
  Company Number: US-BAYER-200814232NA

PATIENT
  Age: 74 Year
  Sex: Male

DRUGS (4)
  1. LEVITRA [Suspect]
     Indication: ERECTILE DYSFUNCTION
     Dosage: TOTAL DAILY DOSE: 20 MG  UNIT DOSE: 20 MG
     Route: 048
     Dates: start: 20080101
  2. BENAZEPRIL HYDROCHLORIDE [Concomitant]
  3. GLYB/METFORMIN 5-500 [Concomitant]
  4. GEMFIBROZIL [Concomitant]

REACTIONS (1)
  - ERECTILE DYSFUNCTION [None]
